FAERS Safety Report 8050856-9 (Version None)
Quarter: 2012Q1

REPORT INFORMATION
  Report Type: 
  Country: None (occurrence: None)
  Receive Date: 20120117
  Receipt Date: 20120104
  Transmission Date: 20120608
  Serious: Yes (Other)
  Sender: FDA-Public Use
  Company Number: PHHY2012CA001161

PATIENT
  Sex: Female

DRUGS (1)
  1. FEMARA [Suspect]
     Route: 065
     Dates: start: 20100901

REACTIONS (4)
  - JOINT STIFFNESS [None]
  - PAIN [None]
  - ARTHRITIS [None]
  - CALCINOSIS [None]
